FAERS Safety Report 18060178 (Version 2)
Quarter: 2021Q2

REPORT INFORMATION
  Report Type: Spontaneous
  Country: None (occurrence: US)
  Receive Date: 20200723
  Receipt Date: 20210628
  Transmission Date: 20210717
  Serious: Yes (Other)
  Sender: FDA-Public Use
  Company Number: US-GLAXOSMITHKLINE-US2020138997

PATIENT
  Sex: Male

DRUGS (3)
  1. ZANTAC [Suspect]
     Active Substance: RANITIDINE HYDROCHLORIDE
     Indication: ABDOMINAL DISCOMFORT
     Dosage: OCCASIONAL|UNKNOWN AT THIS TIME|PRESCRIPTION
     Route: 065
     Dates: start: 198001, end: 199506
  2. ZANTAC [Suspect]
     Active Substance: RANITIDINE HYDROCHLORIDE
     Indication: ABDOMINAL DISCOMFORT
     Dosage: OCCASIONAL|UNKNOWN AT THIS TIME|PRESCRIPTION
     Route: 065
     Dates: start: 198001, end: 199506
  3. ZANTAC [Suspect]
     Active Substance: RANITIDINE HYDROCHLORIDE
     Dates: start: 19800115, end: 19950615

REACTIONS (3)
  - Gastric cancer [Unknown]
  - Prostatic disorder [Unknown]
  - Prostate cancer [Unknown]
